FAERS Safety Report 8578152-1 (Version None)
Quarter: 2012Q2

REPORT INFORMATION
  Report Type: 
  Country: None (occurrence: None)
  Receive Date: 20120423
  Receipt Date: 20100513
  Transmission Date: 20120825
  Serious: Yes (Hospitalization, Other)
  Sender: FDA-Public Use
  Company Number: PHHY2010US05060

PATIENT
  Age: 45 Year
  Sex: Male

DRUGS (2)
  1. EXJADE [Suspect]
     Indication: IRON OVERLOAD
     Dosage: 1000 MG, DAILY, ORAL; 1500 MG, QD, ORAL
     Route: 048
  2. EXJADE [Suspect]
     Indication: SICKLE CELL ANAEMIA WITH CRISIS
     Dosage: 1000 MG, DAILY, ORAL; 1500 MG, QD, ORAL
     Route: 048

REACTIONS (2)
  - CHEST PAIN [None]
  - SICKLE CELL ANAEMIA WITH CRISIS [None]
